FAERS Safety Report 19879543 (Version 4)
Quarter: 2022Q1

REPORT INFORMATION
  Report Type: Spontaneous
  Country: JP (occurrence: JP)
  Receive Date: 20210924
  Receipt Date: 20220131
  Transmission Date: 20220423
  Serious: Yes (Hospitalization, Other)
  Sender: FDA-Public Use
  Company Number: JP-BRISTOL-MYERS SQUIBB COMPANY-BMS-2021-095365

PATIENT
  Age: 30 Year
  Sex: Female

DRUGS (4)
  1. YERVOY [Suspect]
     Active Substance: IPILIMUMAB
     Indication: Malignant melanoma
     Dosage: 150 MILLIGRAM, Q3WK
     Route: 041
     Dates: start: 20210819, end: 20210819
  2. YERVOY [Suspect]
     Active Substance: IPILIMUMAB
     Dosage: 150 MILLIGRAM, Q3WK
     Route: 041
     Dates: start: 20210909, end: 20210909
  3. OPDIVO [Suspect]
     Active Substance: NIVOLUMAB
     Indication: Malignant melanoma
     Dosage: 80 MILLIGRAM, Q3WK
     Route: 041
     Dates: start: 20210819, end: 20210819
  4. OPDIVO [Suspect]
     Active Substance: NIVOLUMAB
     Dosage: 80 MILLIGRAM, Q3WK
     Route: 041
     Dates: start: 20210909, end: 20210909

REACTIONS (1)
  - Drug-induced liver injury [Recovered/Resolved]

NARRATIVE: CASE EVENT DATE: 20210911
